FAERS Safety Report 7728897-8 (Version None)
Quarter: 2011Q3

REPORT INFORMATION
  Report Type: 
  Country: None (occurrence: None)
  Receive Date: 20110831
  Receipt Date: 20110831
  Transmission Date: 20111222
  Serious: No
  Sender: FDA-Public Use
  Company Number: None

PATIENT
  Age: 81 Year
  Sex: Male
  Weight: 63.2 kg

DRUGS (1)
  1. DABIGATRAN [Suspect]
     Dosage: MG BID PO
     Route: 048
     Dates: start: 20110315

REACTIONS (2)
  - HAEMORRHAGE [None]
  - EPISTAXIS [None]
